FAERS Safety Report 9484921 (Version 1)
Quarter: 2013Q3

REPORT INFORMATION
  Report Type: Spontaneous
  Country: US (occurrence: US)
  Receive Date: 20130828
  Receipt Date: 20130828
  Transmission Date: 20140515
  Serious: No
  Sender: FDA-Public Use
  Company Number: US-ABBOTT-13P-163-1118309-00

PATIENT
  Sex: Male
  Weight: 106.69 kg

DRUGS (5)
  1. ANDROGEL [Suspect]
     Indication: BLOOD TESTOSTERONE DECREASED
     Dosage: 2 PUMPS PER DAY
     Dates: start: 201304, end: 201307
  2. ANDROGEL [Suspect]
     Dosage: 4 PUMPS PER DAY
     Dates: start: 201307
  3. HYDROCODONE [Concomitant]
     Indication: BACK PAIN
  4. UNKNOWN MEDICATION [Concomitant]
     Indication: BLOOD PRESSURE
  5. UNKNOWN CHOLESTEROL MEDICATION [Concomitant]
     Indication: BLOOD CHOLESTEROL INCREASED

REACTIONS (1)
  - Blood testosterone decreased [Not Recovered/Not Resolved]
